FAERS Safety Report 6621894-5 (Version None)
Quarter: 2010Q1

REPORT INFORMATION
  Report Type: 
  Country: None (occurrence: None)
  Receive Date: 20100309
  Receipt Date: 20100304
  Transmission Date: 20100710
  Serious: Yes (Other)
  Sender: FDA-Public Use
  Company Number: US-ABBOTT-10P-163-0630504-00

PATIENT
  Age: 49 Year
  Sex: Female

DRUGS (6)
  1. CLARITHROMYCIN [Suspect]
     Indication: SINUSITIS
  2. SALMETEROL [Interacting]
     Indication: DRUG USE FOR UNKNOWN INDICATION
     Route: 055
  3. ALBUTEROL [Interacting]
     Indication: DRUG USE FOR UNKNOWN INDICATION
  4. TERFENADINE [Concomitant]
     Indication: SINUSITIS
  5. METHYLPREDNISOLONE [Concomitant]
     Indication: DRUG USE FOR UNKNOWN INDICATION
  6. CEFPROZIL [Concomitant]
     Indication: SINUSITIS
     Dosage: NOT REPORTED

REACTIONS (2)
  - ATRIAL FIBRILLATION [None]
  - DRUG INTERACTION [None]
